FAERS Safety Report 5088233-5 (Version None)
Quarter: 2006Q3

REPORT INFORMATION
  Report Type: 
  Country: None (occurrence: None)
  Receive Date: 20060824
  Receipt Date: 20060816
  Transmission Date: 20061208
  Serious: Yes (Hospitalization, Other)
  Sender: FDA-Public Use
  Company Number: US-MERCK-0608USA03969

PATIENT
  Age: 58 Year
  Sex: Male

DRUGS (4)
  1. VYTORIN [Suspect]
     Route: 048
     Dates: start: 20060101
  2. CLONAZEPAM [Concomitant]
     Route: 065
  3. PRILOSEC [Concomitant]
     Route: 048
  4. CYMBALTA [Concomitant]
     Route: 065

REACTIONS (1)
  - NEPHROLITHIASIS [None]
